FAERS Safety Report 23861172 (Version 4)
Quarter: 2025Q3

REPORT INFORMATION
  Report Type: Report from Study
  Country: US (occurrence: US)
  Receive Date: 20240516
  Receipt Date: 20250826
  Transmission Date: 20251021
  Serious: Yes (Hospitalization, Other)
  Sender: ABBVIE
  Company Number: US-ABBVIE-5719194

PATIENT
  Age: 64 Year
  Sex: Female

DRUGS (2)
  1. HUMIRA [Suspect]
     Active Substance: ADALIMUMAB
     Indication: Rheumatoid arthritis
     Route: 058
     Dates: start: 20230915
  2. HUMIRA [Suspect]
     Active Substance: ADALIMUMAB
     Indication: Juvenile idiopathic arthritis

REACTIONS (10)
  - Epidural injection [Recovering/Resolving]
  - Neuralgia [Recovering/Resolving]
  - Fibromyalgia [Not Recovered/Not Resolved]
  - Injection site papule [Recovering/Resolving]
  - Injection site erythema [Recovered/Resolved]
  - Intervertebral disc space narrowing [Unknown]
  - Memory impairment [Unknown]
  - Peripheral swelling [Recovering/Resolving]
  - Nervous system disorder [Unknown]
  - Spinal operation [Unknown]

NARRATIVE: CASE EVENT DATE: 20240101
